FAERS Safety Report 14653728 (Version 2)
Quarter: 2018Q3

REPORT INFORMATION
  Report Type: Spontaneous
  Country: US (occurrence: US)
  Receive Date: 20180319
  Receipt Date: 20180731
  Transmission Date: 20181010
  Serious: Yes (Other)
  Sender: FDA-Public Use
  Company Number: US-PFIZER INC-2018104744

PATIENT
  Sex: Female

DRUGS (1)
  1. DUAVEE [Suspect]
     Active Substance: BAZEDOXIFENE ACETATE\ESTROGENS, CONJUGATED
     Indication: OESTRADIOL DECREASED
     Dosage: UNK

REACTIONS (4)
  - Autoimmune disorder [Unknown]
  - Blood cholesterol increased [Recovered/Resolved]
  - Breast enlargement [Unknown]
  - Breast tenderness [Unknown]
